FAERS Safety Report 25009533 (Version 1)
Quarter: 2025Q1

REPORT INFORMATION
  Report Type: Spontaneous
  Country: US (occurrence: US)
  Receive Date: 20250225
  Receipt Date: 20250225
  Transmission Date: 20250408
  Serious: No
  Sender: JOHNSON AND JOHNSON
  Company Number: US-JNJFOC-20250249644

PATIENT
  Sex: Male

DRUGS (2)
  1. RISPERDAL [Suspect]
     Active Substance: RISPERIDONE
     Indication: Agitation
     Route: 048
  2. RISPERDAL [Suspect]
     Active Substance: RISPERIDONE
     Indication: Irritability
     Dosage: 2 MG HALF TABLET
     Route: 048
     Dates: start: 20130117, end: 20131015

REACTIONS (5)
  - Blood prolactin increased [Unknown]
  - Gynaecomastia [Unknown]
  - Galactorrhoea [Recovering/Resolving]
  - Dyskinesia [Unknown]
  - Off label use [Unknown]
